FAERS Safety Report 21664846 (Version 1)
Quarter: 2022Q4

REPORT INFORMATION
  Report Type: Spontaneous
  Country: US (occurrence: None)
  Receive Date: 20221130
  Receipt Date: 20221130
  Transmission Date: 20230113
  Serious: No
  Sender: FDA-Public Use
  Company Number: None

PATIENT
  Sex: Female

DRUGS (1)
  1. HUMIRA [Suspect]
     Active Substance: ADALIMUMAB
     Indication: Psoriatic arthropathy
     Dosage: FREQUENCY : EVERY OTHER WEEK;?
     Route: 058
     Dates: start: 20221103

REACTIONS (7)
  - Drug ineffective [None]
  - Condition aggravated [None]
  - Joint swelling [None]
  - Arthralgia [None]
  - Erythema [None]
  - Pruritus [None]
  - Skin burning sensation [None]
